FAERS Safety Report 5293204-X (Version None)
Quarter: 2007Q2

REPORT INFORMATION
  Report Type: 
  Country: None (occurrence: None)
  Receive Date: 20070405
  Receipt Date: 20070329
  Transmission Date: 20071010
  Serious: Yes (Death, Hospitalization)
  Sender: FDA-Public Use
  Company Number: 083-C5013-06111292

PATIENT
  Age: 68 Year
  Sex: Male
  Weight: 50 kg

DRUGS (7)
  1. CC-5013 (LENALIDOMIDE) (25 MILLIGRAM, CAPSULES) [Suspect]
     Indication: MULTIPLE MYELOMA
     Dosage: 25 MG, 1 IN 1 D; ORAL
     Route: 048
     Dates: start: 20060914, end: 20061107
  2. ERYTHROPOIETIN (ERYTHROPOIETIN) [Concomitant]
  3. IRON (IRON) [Concomitant]
  4. G-CSF (GRANULOCYTE COLONY STIMULATING FACTOR) [Concomitant]
  5. TRANEXAMIC ACID (TRANEXAMIC ACID) [Concomitant]
  6. PREDNISONE TAB [Concomitant]
  7. ALLOPURINOL [Concomitant]

REACTIONS (7)
  - ANAEMIA [None]
  - BLOOD CREATININE INCREASED [None]
  - BRONCHOPNEUMONIA [None]
  - GENERAL PHYSICAL HEALTH DETERIORATION [None]
  - LEUKOPENIA [None]
  - NEUTROPENIA [None]
  - THROMBOCYTOPENIA [None]
